FAERS Safety Report 9733810 (Version 2)
Quarter: 2013Q4

REPORT INFORMATION
  Report Type: Spontaneous
  Country: US (occurrence: US)
  Receive Date: 20131205
  Receipt Date: 20131226
  Transmission Date: 20140711
  Serious: No
  Sender: FDA-Public Use
  Company Number: US-PFIZER INC-2013346671

PATIENT
  Age: 75 Year
  Sex: Female

DRUGS (1)
  1. XELJANZ [Suspect]
     Dosage: 5 MG, 6H (EVERY 6 HOURS)
     Route: 048

REACTIONS (2)
  - Abdominal pain [Unknown]
  - Gastrointestinal pain [Recovered/Resolved]
